FAERS Safety Report 6273456-X (Version None)
Quarter: 2009Q3

REPORT INFORMATION
  Report Type: 
  Country: None (occurrence: None)
  Receive Date: 20090720
  Receipt Date: 20090713
  Transmission Date: 20100115
  Serious: Yes (Other)
  Sender: FDA-Public Use
  Company Number: PHHY2009BR29232

PATIENT
  Sex: Female
  Weight: 50 kg

DRUGS (4)
  1. EXELON [Suspect]
     Indication: DEMENTIA ALZHEIMER'S TYPE
     Dosage: 1.5 MG, BID
     Route: 048
     Dates: start: 20070101
  2. EVISTA [Concomitant]
     Indication: OSTEOPENIA
     Dosage: 1 TABLET/DAY
     Route: 048
  3. ROCALTROL [Concomitant]
     Indication: OSTEOPENIA
     Dosage: 1 TABLET/DAY
     Route: 048
  4. CALSAN [Concomitant]
     Indication: OSTEOPENIA
     Dosage: 500 MG, QD
     Route: 048

REACTIONS (2)
  - CONVULSION [None]
  - HALLUCINATION [None]
